FAERS Safety Report 8592650-6 (Version None)
Quarter: 2012Q3

REPORT INFORMATION
  Report Type: 
  Country: None (occurrence: None)
  Receive Date: 20120814
  Receipt Date: 20120802
  Transmission Date: 20120928
  Serious: Yes (Hospitalization, Other)
  Sender: FDA-Public Use
  Company Number: IT-ELI_LILLY_AND_COMPANY-IT201208000993

PATIENT
  Sex: Male

DRUGS (12)
  1. ASPIRIN [Concomitant]
     Indication: CARDIOVASCULAR EVENT PROPHYLAXIS
     Dosage: 100 MG, UNK
     Route: 048
     Dates: start: 20120407, end: 20120726
  2. DELORAZEPAM [Concomitant]
     Indication: SLEEP DISORDER
     Dosage: 15 GTT, UNK
  3. HUMALOG [Suspect]
     Indication: TYPE 2 DIABETES MELLITUS
     Dosage: 44 IU, QD
     Dates: start: 20120101, end: 20120726
  4. RAMIPRIL [Concomitant]
     Indication: HYPERTENSION
     Dosage: 10 MG, UNK
  5. CARVEDILOL [Concomitant]
     Indication: HYPERTENSION
     Dosage: 50 MG, UNK
  6. AMLODIPINE BESYLATE [Concomitant]
     Indication: HYPERTENSION
     Dosage: 5 MG, UNK
  7. LANTUS [Concomitant]
     Indication: TYPE 2 DIABETES MELLITUS
     Dosage: 12 IU, QD
     Route: 058
     Dates: start: 20120101, end: 20120726
  8. PLAVIX [Concomitant]
     Indication: CARDIOVASCULAR EVENT PROPHYLAXIS
     Dosage: 1 DF, UNK
     Dates: start: 20110601, end: 20120723
  9. NITROGLYCERIN [Concomitant]
     Indication: ANGINA UNSTABLE
     Route: 062
  10. LASIX [Concomitant]
     Dosage: 1 DF, UNK
     Route: 048
  11. ISOSORBIDE DINITRATE [Concomitant]
     Indication: ANGINA PECTORIS
     Dosage: 1 DF, UNK
     Route: 060
  12. ATORVASTATIN CALCIUM [Concomitant]
     Dosage: 1 DF, UNK
     Route: 048

REACTIONS (6)
  - WOUND INFECTION STAPHYLOCOCCAL [None]
  - PERIPHERAL ARTERIAL OCCLUSIVE DISEASE [None]
  - ANGINA UNSTABLE [None]
  - CHEST PAIN [None]
  - HYPOGLYCAEMIC COMA [None]
  - TONGUE HAEMORRHAGE [None]
